FAERS Safety Report 17289438 (Version 1)
Quarter: 2020Q1

REPORT INFORMATION
  Report Type: Spontaneous
  Country: IN (occurrence: IN)
  Receive Date: 20200120
  Receipt Date: 20200120
  Transmission Date: 20200409
  Serious: Yes (Other)
  Sender: FDA-Public Use
  Company Number: NVSC2020IN006335

PATIENT

DRUGS (2)
  1. PREDNISOLONE. [Suspect]
     Active Substance: PREDNISOLONE
     Indication: NEPHROTIC SYNDROME
     Dosage: 2 MG/KG, QD (FOLLOWED BY 1.5 MG/KG ON ALTERNATE DAYS FOR 4 WEEKS)
     Route: 065
  2. MYCOPHENOLATE MOFETIL. [Suspect]
     Active Substance: MYCOPHENOLATE MOFETIL
     Indication: NEPHROTIC SYNDROME
     Dosage: 25 MG/KG, QD (20?25 MG/KG PER DAY IN TWO DIVIDED DOSES)
     Route: 065

REACTIONS (2)
  - Peritonitis [Unknown]
  - Product use in unapproved indication [Unknown]
